FAERS Safety Report 10790944 (Version 1)
Quarter: 2015Q1

REPORT INFORMATION
  Report Type: Report from Study
  Country: US (occurrence: US)
  Receive Date: 20150212
  Receipt Date: 20150212
  Transmission Date: 20150721
  Serious: Yes (Other)
  Sender: FDA-Public Use
  Company Number: US-GILEAD-2015-0136354

PATIENT
  Age: 72 Year
  Sex: Male

DRUGS (1)
  1. RANOLAZINE [Suspect]
     Active Substance: RANOLAZINE
     Indication: PRODUCT USED FOR UNKNOWN INDICATION
     Dosage: 1000 MG, UNK
     Route: 048

REACTIONS (8)
  - Stent placement [Recovered/Resolved]
  - Renal disorder [Unknown]
  - Cardiac failure [Not Recovered/Not Resolved]
  - Cardiac pacemaker insertion [Recovered/Resolved]
  - Diabetes mellitus [Not Recovered/Not Resolved]
  - Liver transplant [Recovered/Resolved]
  - Coronary artery bypass [Recovered/Resolved]
  - Thrombosis prophylaxis [Not Recovered/Not Resolved]
